FAERS Safety Report 10753100 (Version 3)
Quarter: 2016Q3

REPORT INFORMATION
  Report Type: Spontaneous
  Country: US (occurrence: US)
  Receive Date: 20150130
  Receipt Date: 20160826
  Transmission Date: 20161109
  Serious: Yes (Hospitalization, Other)
  Sender: FDA-Public Use
  Company Number: US-PFIZER INC-2015032521

PATIENT
  Age: 84 Year
  Sex: Female
  Weight: 60.31 kg

DRUGS (12)
  1. NORCO [Concomitant]
     Active Substance: ACETAMINOPHEN\HYDROCODONE BITARTRATE
     Indication: PAIN
     Dosage: 7.5-325 MG 1 TABLET AS NEEDED EVERY 6 HOURS AS NEEDED (PRN) FOR PAIN
  2. LASIX [Concomitant]
     Active Substance: FUROSEMIDE
     Dosage: 40 MG, 1X/DAY
  3. JAKAFI [Concomitant]
     Active Substance: RUXOLITINIB
     Dosage: 15 MG, DAILY
  4. FUROSEMIDE. [Concomitant]
     Active Substance: FUROSEMIDE
     Dosage: 40 MG TABLET ONCE A DAY
  5. ASPIRIN ADULT LOW [Concomitant]
     Dosage: 81 MG, 1X/DAY
  6. REVATIO [Suspect]
     Active Substance: SILDENAFIL CITRATE
     Indication: PULMONARY HYPERTENSION
     Dosage: 20 MG, 2X/DAY
     Route: 048
  7. ACETAMINOPHEN. [Concomitant]
     Active Substance: ACETAMINOPHEN
     Dosage: 500 MG, 1 CAPSULE AS NEEDED ONCE A DAY
  8. POTASSIUM BICARB-CITRIC ACID [Concomitant]
     Dosage: 10 MEQ, 1X/DAY
  9. RESTORIL [Concomitant]
     Active Substance: TEMAZEPAM
     Dosage: 30 MG, 1 CAPSULE AT BED TIME AS NEEDED ONCE A DAY
  10. LOPRESSOR [Concomitant]
     Active Substance: METOPROLOL TARTRATE
     Dosage: 12.5 MG, 2X/DAY
  11. MUCINEX [Concomitant]
     Active Substance: GUAIFENESIN
     Dosage: 600 MG TABLET EXTENDED RELEASE 12 HOURS 1 TABLET AS NEEDED EVERY 12 HOURS
  12. TEMAZEPAM. [Concomitant]
     Active Substance: TEMAZEPAM
     Dosage: 15 MG 1 CAPSULE AS NEEDED, AT BED TIME; ONCE A DAY

REACTIONS (5)
  - Productive cough [Unknown]
  - Urinary tract infection [Recovered/Resolved]
  - Fluid retention [Recovered/Resolved]
  - Weight fluctuation [Unknown]
  - Dyspnoea [Unknown]

NARRATIVE: CASE EVENT DATE: 2016
